FAERS Safety Report 23263592 (Version 5)
Quarter: 2024Q1

REPORT INFORMATION
  Report Type: Spontaneous
  Country: US (occurrence: US)
  Receive Date: 20231205
  Receipt Date: 20240131
  Transmission Date: 20240409
  Serious: No
  Sender: FDA-Public Use
  Company Number: US-PFIZER INC-202300414135

PATIENT
  Age: 10 Year
  Sex: Male
  Weight: 26.7 kg

DRUGS (1)
  1. GENOTROPIN [Suspect]
     Active Substance: SOMATROPIN
     Indication: Short stature
     Dosage: NIGHTLY
     Route: 058
     Dates: start: 20231121, end: 20231125

REACTIONS (8)
  - Accidental exposure to product [Unknown]
  - Exposure via skin contact [Unknown]
  - Injection site haemorrhage [Unknown]
  - Nervousness [Unknown]
  - Drug dose omission by device [Unknown]
  - Incorrect dose administered by device [Unknown]
  - Device leakage [Unknown]
  - Product odour abnormal [Unknown]

NARRATIVE: CASE EVENT DATE: 20231101
